FAERS Safety Report 16707845 (Version 1)
Quarter: 2019Q3

REPORT INFORMATION
  Report Type: Spontaneous
  Country: FR (occurrence: FR)
  Receive Date: 20190815
  Receipt Date: 20190815
  Transmission Date: 20191004
  Serious: Yes (Hospitalization)
  Sender: FDA-Public Use
  Company Number: PHHY2019FR186253

PATIENT
  Age: 61 Year
  Sex: Male
  Weight: 83 kg

DRUGS (2)
  1. CLARITHROMYCIN. [Suspect]
     Active Substance: CLARITHROMYCIN
     Indication: LUNG DISORDER
     Dosage: 1000 MG, QD
     Route: 048
     Dates: end: 20190701
  2. ELIQUIS [Interacting]
     Active Substance: APIXABAN
     Indication: CATHETER SITE THROMBOSIS
     Dosage: 20 MG, QD
     Route: 048
     Dates: start: 20190628

REACTIONS (2)
  - Purpura [Recovered/Resolved]
  - Drug interaction [Recovered/Resolved]

NARRATIVE: CASE EVENT DATE: 20190701
